FAERS Safety Report 8074724-1 (Version None)
Quarter: 2012Q1

REPORT INFORMATION
  Report Type: 
  Country: None (occurrence: None)
  Receive Date: 20120126
  Receipt Date: 20120116
  Transmission Date: 20120608
  Serious: Yes (Hospitalization, Other)
  Sender: FDA-Public Use
  Company Number: US-BAXTER-2012BH001212

PATIENT
  Age: 51 Year
  Sex: Female

DRUGS (1)
  1. DIANEAL [Suspect]
     Indication: PERITONEAL DIALYSIS
     Route: 033

REACTIONS (5)
  - FAILURE TO THRIVE [None]
  - MYOCARDIAL INFARCTION [None]
  - BLOODY PERITONEAL EFFLUENT [None]
  - INFECTIOUS PERITONITIS [None]
  - ADRENAL INSUFFICIENCY [None]
